FAERS Safety Report 4929240-X (Version None)
Quarter: 2006Q1

REPORT INFORMATION
  Report Type: 
  Country: None (occurrence: None)
  Receive Date: 20060301
  Receipt Date: 20060123
  Transmission Date: 20060701
  Serious: Yes (Other)
  Sender: FDA-Public Use
  Company Number: GB-SANOFI-SYNTHELABO-A01200600634

PATIENT
  Age: 75 Year
  Sex: Male

DRUGS (4)
  1. ELOXATIN [Suspect]
     Indication: COLORECTAL CANCER
     Route: 042
     Dates: start: 20060120, end: 20060120
  2. ATENOLOL [Concomitant]
  3. INDAPAMIDE [Concomitant]
  4. FRUSEMIDE [Concomitant]

REACTIONS (7)
  - CONFUSIONAL STATE [None]
  - DRUG HYPERSENSITIVITY [None]
  - DYSPNOEA [None]
  - HYPOKALAEMIA [None]
  - MUSCLE RIGIDITY [None]
  - PERIPHERAL MOTOR NEUROPATHY [None]
  - PERIPHERAL SENSORY NEUROPATHY [None]
